FAERS Safety Report 7945868-7 (Version None)
Quarter: 2011Q4

REPORT INFORMATION
  Report Type: 
  Country: None (occurrence: None)
  Receive Date: 20111129
  Receipt Date: 20111117
  Transmission Date: 20120403
  Serious: Yes (Other)
  Sender: FDA-Public Use
  Company Number: PHHY2011JP101595

PATIENT

DRUGS (2)
  1. RASILEZ [Suspect]
     Dosage: UNK UKN, UNK
     Route: 048
  2. ALMARL [Concomitant]
     Route: 048

REACTIONS (4)
  - MUSCULOSKELETAL STIFFNESS [None]
  - PAIN [None]
  - BLOOD PRESSURE INCREASED [None]
  - HYPERSOMNIA [None]
